FAERS Safety Report 8008133-8 (Version None)
Quarter: 2011Q4

REPORT INFORMATION
  Report Type: 
  Country: None (occurrence: None)
  Receive Date: 20111227
  Receipt Date: 20111221
  Transmission Date: 20120403
  Serious: Yes (Hospitalization)
  Sender: FDA-Public Use
  Company Number: PHHY2011VE112229

PATIENT
  Sex: Female

DRUGS (5)
  1. ZOLEDRONOC ACID [Suspect]
     Dosage: 5 MG, ONCE A YEAR
     Route: 042
     Dates: start: 20091206
  2. ZOLEDRONOC ACID [Suspect]
     Dosage: 5 MG, ONCE A YEAR
     Route: 042
     Dates: start: 20101206
  3. COZAAR [Concomitant]
     Indication: HYPERTENSION
     Dosage: UNK UKN, UNK
  4. PROXAR [Concomitant]
     Indication: NERVOUS SYSTEM DISORDER
     Dosage: UNK UKN, UNK
  5. ZOLEDRONOC ACID [Suspect]
     Dosage: 5 MG, ONCE A YEAR
     Route: 042
     Dates: start: 20111201

REACTIONS (1)
  - INGUINAL HERNIA [None]
